FAERS Safety Report 6214728-4 (Version None)
Quarter: 2009Q2

REPORT INFORMATION
  Report Type: 
  Country: None (occurrence: None)
  Receive Date: 20090604
  Receipt Date: 20090527
  Transmission Date: 20091009
  Serious: Yes (Hospitalization)
  Sender: FDA-Public Use
  Company Number: A0788254A

PATIENT
  Sex: Male
  Weight: 82 kg

DRUGS (4)
  1. SERETIDE [Suspect]
     Indication: ASTHMA
     Route: 055
     Dates: start: 20060601
  2. HALDOL [Concomitant]
     Dosage: 1TAB PER DAY
     Dates: start: 20040101
  3. ATENOLOL [Concomitant]
     Dosage: 1TAB PER DAY
     Dates: start: 20040101
  4. LEVOMEPROMAZINE [Concomitant]
     Indication: INSOMNIA
     Dates: start: 20040101

REACTIONS (2)
  - ASTHMATIC CRISIS [None]
  - DRUG ADMINISTRATION ERROR [None]
